FAERS Safety Report 9067634 (Version 1)
Quarter: 2013Q1

REPORT INFORMATION
  Report Type: Spontaneous
  Country: US (occurrence: US)
  Receive Date: 20130206
  Receipt Date: 20130206
  Transmission Date: 20140127
  Serious: No
  Sender: FDA-Public Use
  Company Number: US-ASTRAZENECA-2013SE03233

PATIENT
  Age: 64 Year
  Sex: Male
  Weight: 114.3 kg

DRUGS (10)
  1. TOPROL XL [Suspect]
     Route: 048
  2. METFORMIN [Concomitant]
  3. NIASPAM [Concomitant]
  4. DIOVAN [Concomitant]
     Indication: BLOOD PRESSURE
  5. RENEXA [Concomitant]
  6. LANTUS [Concomitant]
  7. LIPITOR GENERIC [Concomitant]
  8. MOBIC [Concomitant]
  9. BABY ASPIRIN [Concomitant]
  10. LOVANZA [Concomitant]

REACTIONS (5)
  - Blood pressure increased [Not Recovered/Not Resolved]
  - Nasopharyngitis [Not Recovered/Not Resolved]
  - Insomnia [Not Recovered/Not Resolved]
  - Palpitations [Not Recovered/Not Resolved]
  - Drug dose omission [Unknown]
